FAERS Safety Report 25769745 (Version 1)
Quarter: 2025Q3

REPORT INFORMATION
  Report Type: Spontaneous
  Country: GB (occurrence: GB)
  Receive Date: 20250907
  Receipt Date: 20250907
  Transmission Date: 20251020
  Serious: Yes (Other)
  Sender: DEXCEL LTD.
  Company Number: None

PATIENT
  Age: 64 Year
  Sex: Female

DRUGS (6)
  1. VENLAFAXINE [Suspect]
     Active Substance: VENLAFAXINE HYDROCHLORIDE
     Dates: start: 20250301
  2. FLUPENTIXOL [Suspect]
     Active Substance: FLUPENTIXOL
  3. CALCIUM [Concomitant]
     Active Substance: CALCIUM
  4. BISOPROLOL [Concomitant]
     Active Substance: BISOPROLOL
  5. IRON [Concomitant]
     Active Substance: IRON
  6. LORAZEPAM [Concomitant]
     Active Substance: LORAZEPAM

REACTIONS (4)
  - Somnolence [Not Recovered/Not Resolved]
  - Dry mouth [Recovered/Resolved]
  - Dysarthria [Recovered/Resolved]
  - Confusional state [Recovered/Resolved]
